FAERS Safety Report 7358959-9 (Version None)
Quarter: 2011Q1

REPORT INFORMATION
  Report Type: 
  Country: None (occurrence: None)
  Receive Date: 20110317
  Receipt Date: 20110311
  Transmission Date: 20110831
  Serious: Yes (Death, Hospitalization)
  Sender: FDA-Public Use
  Company Number: US-ELI_LILLY_AND_COMPANY-US201103004112

PATIENT
  Sex: Female
  Weight: 42.812 kg

DRUGS (10)
  1. TESSALON [Concomitant]
     Dosage: 100 MG, 3/D
  2. FLONASE [Concomitant]
     Dosage: 0.05 %, 2/D
  3. ZOFRAN [Concomitant]
     Dosage: 8 MG, AS NEEDED
  4. MULTI-VITAMIN [Concomitant]
     Dosage: 1 D/F, DAILY (1/D)
  5. PEMETREXED [Suspect]
     Indication: NON-SMALL CELL LUNG CANCER
     Dosage: 685 MG, OTHER
     Dates: start: 20060511, end: 20060511
  6. LORAZEPAM [Concomitant]
     Dosage: 0.5 MG, 3/D
  7. RED BLOOD CELLS, CONCENTRATED [Concomitant]
     Dosage: 3 D/F, UNK
  8. PRILOSEC [Concomitant]
     Dosage: 20 MG, DAILY (1/D)
     Route: 048
  9. FOLIC ACID [Concomitant]
     Dosage: 4 MG, DAILY (1/D)
     Route: 048
  10. OXYCODONE HCL [Concomitant]
     Dosage: 5 MG, EVERY 4 HRS

REACTIONS (6)
  - HYPOXIA [None]
  - DEHYDRATION [None]
  - DYSPNOEA [None]
  - PNEUMONIA [None]
  - NEUTROPENIA [None]
  - DIARRHOEA [None]
